FAERS Safety Report 18283307 (Version 1)
Quarter: 2020Q3

REPORT INFORMATION
  Report Type: Spontaneous
  Country: US (occurrence: US)
  Receive Date: 20200918
  Receipt Date: 20200918
  Transmission Date: 20201103
  Serious: No
  Sender: FDA-Public Use
  Company Number: US-BAUDAX BIO, INC.-BAUDAX-2020-000002

PATIENT
  Age: 39 Year
  Sex: Female

DRUGS (1)
  1. ANJESO [Suspect]
     Active Substance: MELOXICAM
     Indication: PAIN
     Dosage: 30 MILLIGRAM, ONE TIME DOSE, OVER 15 SECONDS
     Route: 042
     Dates: start: 20200723, end: 20200723

REACTIONS (1)
  - Hot flush [Recovered/Resolved]

NARRATIVE: CASE EVENT DATE: 20200723
